FAERS Safety Report 6283771-1 (Version None)
Quarter: 2009Q3

REPORT INFORMATION
  Report Type: 
  Country: None (occurrence: None)
  Receive Date: 20090724
  Receipt Date: 20070809
  Transmission Date: 20100115
  Serious: Yes (Other)
  Sender: FDA-Public Use
  Company Number: US-ASTRAZENECA-2007UW05947

PATIENT
  Age: 620 Month
  Sex: Male
  Weight: 110.9 kg

DRUGS (16)
  1. SEROQUEL [Suspect]
     Indication: DEPRESSION
     Route: 048
     Dates: start: 19990722, end: 20060801
  2. SEROQUEL [Suspect]
     Dosage: 100 MG - 300 MG DAIY
     Route: 048
     Dates: start: 19990722
  3. LASIX [Concomitant]
     Route: 048
     Dates: start: 20030531
  4. LISINOPRIL [Concomitant]
     Indication: HYPERTENSION
     Route: 048
     Dates: start: 20000811
  5. VIAGRA [Concomitant]
     Indication: ERECTILE DYSFUNCTION
     Route: 048
     Dates: start: 20001117
  6. OMEPRAZOLE [Concomitant]
     Route: 048
     Dates: start: 20070808
  7. SERTRALINE HYDROCHLORIDE [Concomitant]
     Route: 048
     Dates: start: 20070808
  8. NIFEDIPINE [Concomitant]
     Route: 048
     Dates: start: 19990224
  9. PROZAC [Concomitant]
     Route: 048
     Dates: start: 19990224
  10. HYDROXYZINE [Concomitant]
     Route: 048
     Dates: start: 19990224
  11. HALDOL [Concomitant]
     Route: 030
     Dates: start: 19990722
  12. REMERON [Concomitant]
     Route: 048
     Dates: start: 19990722
  13. SYNTHROID [Concomitant]
     Route: 048
     Dates: start: 19990723
  14. DESYREL [Concomitant]
     Route: 048
     Dates: start: 19990726
  15. BUPROPION HCL [Concomitant]
     Indication: DEPRESSION
     Dates: start: 20030601
  16. LOPERAMIDE HYDROCHLORIDE [Concomitant]
     Route: 048
     Dates: start: 20030603

REACTIONS (5)
  - INJURY [None]
  - MERALGIA PARAESTHETICA [None]
  - TYPE 2 DIABETES MELLITUS [None]
  - WEIGHT DECREASED [None]
  - WEIGHT INCREASED [None]
